FAERS Safety Report 21351179 (Version 1)
Quarter: 2022Q3

REPORT INFORMATION
  Report Type: Spontaneous
  Country: JP (occurrence: JP)
  Receive Date: 20220919
  Receipt Date: 20220919
  Transmission Date: 20221026
  Serious: Yes (Death, Hospitalization, Other)
  Sender: FDA-Public Use
  Company Number: JP-JAZZ-2022-JP-029801

PATIENT
  Age: 58 Year
  Sex: Female
  Weight: 56.3 kg

DRUGS (11)
  1. DEFITELIO [Suspect]
     Active Substance: DEFIBROTIDE SODIUM
     Indication: Venoocclusive liver disease
     Dosage: 6.25 MILLIGRAM/KILOGRAM/24 HOURS
     Route: 042
     Dates: start: 20210308, end: 20210330
  2. DEFITELIO [Suspect]
     Active Substance: DEFIBROTIDE SODIUM
     Dosage: 6.25 MILLIGRAM/KILOGRAM/24 HOURS
     Route: 042
     Dates: start: 20210424, end: 20210428
  3. ACOALAN [Concomitant]
     Dosage: UNK
     Dates: start: 20210424, end: 20210427
  4. CARBAZOCHROME SODIUM SULFONATE [Concomitant]
     Active Substance: CARBAZOCHROME SODIUM SULFONATE
     Indication: Brain stem haemorrhage
     Dosage: UNK
     Dates: start: 20210425
  5. TRANSAMIN [Concomitant]
     Active Substance: TRANEXAMIC ACID
     Indication: Brain stem haemorrhage
     Dosage: UNK
     Dates: start: 20210425
  6. PLATELETS [Concomitant]
     Active Substance: HUMAN PLATELET, ALLOGENIC
     Indication: Brain stem haemorrhage
     Dosage: UNK
     Dates: start: 20210425
  7. FRESH FROZEN PLASMA [Concomitant]
     Active Substance: HUMAN PLASMA
     Indication: Brain stem haemorrhage
     Dosage: UNK
     Dates: start: 20210425
  8. NOREPINEPHRINE [Concomitant]
     Active Substance: NOREPINEPHRINE
     Indication: Hypotension
     Dosage: UNK
     Dates: start: 20210425
  9. LASIX [Concomitant]
     Active Substance: FUROSEMIDE
     Indication: Hypotension
     Dosage: UNK
     Dates: start: 20210425
  10. DOBUTAMINE [Concomitant]
     Active Substance: DOBUTAMINE HYDROCHLORIDE
     Indication: Hypotension
     Dosage: UNK
     Dates: start: 20210425
  11. CARPERITIDE [Concomitant]
     Active Substance: CARPERITIDE
     Indication: Hypotension
     Dosage: UNK
     Dates: start: 20210425

REACTIONS (3)
  - Acute myeloid leukaemia [Fatal]
  - Hypotension [Fatal]
  - Brain stem haemorrhage [Not Recovered/Not Resolved]

NARRATIVE: CASE EVENT DATE: 20210424
